FAERS Safety Report 10733010 (Version 2)
Quarter: 2015Q1

REPORT INFORMATION
  Report Type: Spontaneous
  Country: US (occurrence: None)
  Receive Date: 20150120
  Receipt Date: 20150120
  Transmission Date: 20150721
  Serious: Yes (Other)
  Sender: FDA-Public Use
  Company Number: 201501033

PATIENT
  Age: 55 Year
  Sex: Male

DRUGS (1)
  1. XIAFLEX [Suspect]
     Active Substance: COLLAGENASE CLOSTRIDIUM HISTOLYTICUM
     Indication: PEYRONIE^S DISEASE
     Dosage: INTRALESIONAL
     Dates: start: 20141211, end: 20141211

REACTIONS (4)
  - Fistula [None]
  - Penile contusion [None]
  - Fracture of penis [None]
  - Penile discharge [None]

NARRATIVE: CASE EVENT DATE: 20141230
